FAERS Safety Report 5146598-X (Version None)
Quarter: 2006Q4

REPORT INFORMATION
  Report Type: 
  Country: None (occurrence: None)
  Receive Date: 20061109
  Receipt Date: 20061026
  Transmission Date: 20070319
  Serious: Yes (Other)
  Sender: FDA-Public Use
  Company Number: PHFR2006CY03215

PATIENT
  Age: 12 Year
  Sex: Male
  Weight: 60 kg

DRUGS (1)
  1. TEGRETOL [Suspect]
     Indication: EPILEPSY
     Dosage: 400MG/MORNING 500MG/EVENING
     Route: 048
     Dates: start: 20020201, end: 20061026

REACTIONS (1)
  - GIANT CELL EPULIS [None]
